FAERS Safety Report 18249855 (Version 2)
Quarter: 2022Q1

REPORT INFORMATION
  Report Type: Spontaneous
  Country: TR (occurrence: TR)
  Receive Date: 20200910
  Receipt Date: 20220105
  Transmission Date: 20220423
  Serious: Yes (Other)
  Sender: FDA-Public Use
  Company Number: TR-NOVARTISPH-NVSC2020TR246517

PATIENT
  Age: 90 Year
  Sex: Female

DRUGS (3)
  1. PANTOPRAZOLE SODIUM [Suspect]
     Active Substance: PANTOPRAZOLE SODIUM
     Indication: Product used for unknown indication
     Dosage: UNK
     Route: 065
  2. ALLOPURINOL [Suspect]
     Active Substance: ALLOPURINOL
     Indication: Product used for unknown indication
     Dosage: UNK (DOUBLE DOSE)
     Route: 065
  3. ALLOPURINOL [Suspect]
     Active Substance: ALLOPURINOL
     Dosage: UNK (SINGLE DOSE)
     Route: 065

REACTIONS (7)
  - Urethral haemorrhage [Unknown]
  - Dysphagia [Unknown]
  - Speech disorder [Unknown]
  - Rash [Not Recovered/Not Resolved]
  - Wrong technique in product usage process [Unknown]
  - Inappropriate schedule of product administration [Unknown]
  - Product administration error [Unknown]
